FAERS Safety Report 7106607 (Version 2)
Quarter: 2015Q1

REPORT INFORMATION
  Report Type: Spontaneous
  Country: DE (occurrence: None)
  Receive Date: 20090825
  Receipt Date: 20150105
  Transmission Date: 20150721
  Serious: Yes (Life-Threatening, Hospitalization)
  Sender: FDA-Public Use
  Company Number: 2009002152

PATIENT
  Age: 50 Year
  Sex: Female

DRUGS (4)
  1. AMINOMIX (AMIN ACIDS NOS, ELECTROLYTES NOS, GLUCOSE) FORMULATION UNKNOWN [Concomitant]
  2. MSI (MORPHINE SULFATE) [Concomitant]
  3. TARCEVA [Suspect]
     Active Substance: ERLOTINIB HYDROCHLORIDE
     Indication: NON-SMALL CELL LUNG CANCER
     Dosage: (150 MG, QD), ORAL
     Route: 048
     Dates: start: 20090303
  4. RO 4858696 (IGF-1R ANTAGONIST) (RO 4858696 (IGF-1R ANTAGONIST)) INFUSION [Concomitant]
     Indication: NON-SMALL CELL LUNG CANCER
     Dosage: ONCE WEEKLY
     Route: 042
     Dates: start: 20090303, end: 20090326

REACTIONS (3)
  - Disease progression [None]
  - Thrombocytopenia [None]
  - Non-small cell lung cancer [None]

NARRATIVE: CASE EVENT DATE: 20090325
